FAERS Safety Report 17978897 (Version 1)
Quarter: 2020Q3

REPORT INFORMATION
  Report Type: Spontaneous
  Country: HU (occurrence: HU)
  Receive Date: 20200703
  Receipt Date: 20200703
  Transmission Date: 20201103
  Serious: Yes (Other)
  Sender: FDA-Public Use
  Company Number: HU-PFIZER INC-2020244974

PATIENT
  Age: 36 Year
  Sex: Female

DRUGS (1)
  1. RELPAX [Suspect]
     Active Substance: ELETRIPTAN HYDROBROMIDE
     Indication: MIGRAINE
     Dosage: 40 MG STARTED FOR ABOUT 15 YEARS AGO
     Route: 048

REACTIONS (2)
  - Migraine-triggered seizure [Unknown]
  - Maternal exposure during pregnancy [Unknown]
